FAERS Safety Report 5299989-0 (Version None)
Quarter: 2007Q2

REPORT INFORMATION
  Report Type: 
  Country: None (occurrence: None)
  Receive Date: 20070410
  Receipt Date: 20070329
  Transmission Date: 20071010
  Serious: Yes (Hospitalization)
  Sender: FDA-Public Use
  Company Number: B0465012A

PATIENT
  Age: 83 Year
  Sex: Female
  Weight: 79.8331 kg

DRUGS (1)
  1. ARIXTRA [Suspect]
     Indication: THROMBOSIS PROPHYLAXIS
     Dosage: 2.5 MG/PER DAY/SUBCUTANEOUS
     Route: 058

REACTIONS (1)
  - SUBDURAL HAEMATOMA [None]
